FAERS Safety Report 15322569 (Version 1)
Quarter: 2018Q3

REPORT INFORMATION
  Report Type: Report from Study
  Country: US (occurrence: US)
  Receive Date: 20180827
  Receipt Date: 20180827
  Transmission Date: 20181010
  Serious: Yes (Hospitalization)
  Sender: FDA-Public Use
  Company Number: US-JNJFOC-20180832266

PATIENT
  Sex: Female

DRUGS (12)
  1. NICOTINAMIDE [Concomitant]
     Active Substance: NIACINAMIDE
  2. POTASSIUM CHLORIDE. [Concomitant]
     Active Substance: POTASSIUM CHLORIDE
  3. ASPIRIN. [Concomitant]
     Active Substance: ASPIRIN
  4. GRANISETRON HCL [Concomitant]
  5. PREDNISONE. [Concomitant]
     Active Substance: PREDNISONE
  6. IMBRUVICA [Suspect]
     Active Substance: IBRUTINIB
     Indication: EXTRANODAL MARGINAL ZONE B-CELL LYMPHOMA (MALT TYPE)
     Route: 048
     Dates: start: 20180726, end: 2018
  7. PYRIDOXINE HYDROCHLORIDE. [Concomitant]
     Active Substance: PYRIDOXINE HYDROCHLORIDE
  8. PROMETHAZINE HCL [Concomitant]
     Active Substance: PROMETHAZINE HYDROCHLORIDE
  9. HYDROCHLOROTHIAZIDE. [Concomitant]
     Active Substance: HYDROCHLOROTHIAZIDE
  10. ALLOPURINOL. [Concomitant]
     Active Substance: ALLOPURINOL
  11. MULTIVITAMINS [Concomitant]
     Active Substance: VITAMINS
  12. REVLIMID [Concomitant]
     Active Substance: LENALIDOMIDE

REACTIONS (3)
  - Fatigue [Unknown]
  - Haematuria [Unknown]
  - Depressed level of consciousness [Unknown]
